FAERS Safety Report 6589965-X (Version None)
Quarter: 2010Q1

REPORT INFORMATION
  Report Type: 
  Country: None (occurrence: None)
  Receive Date: 20100212
  Receipt Date: 20100128
  Transmission Date: 20100710
  Serious: Yes (Other)
  Sender: FDA-Public Use
  Company Number: DSA_42514_2010

PATIENT
  Sex: Female

DRUGS (2)
  1. CARDIZEM [Suspect]
     Indication: HYPERTENSION
     Dosage: (180 MG QD ORAL)
     Route: 048
     Dates: start: 20100101
  2. XIFAXAN [Suspect]
     Indication: DRUG USE FOR UNKNOWN INDICATION
     Dosage: (200 DF BID ORAL)
     Route: 048
     Dates: start: 20100101

REACTIONS (2)
  - PRODUCT COMMINGLING [None]
  - WRONG DRUG ADMINISTERED [None]
